FAERS Safety Report 6942446-3 (Version None)
Quarter: 2010Q3

REPORT INFORMATION
  Report Type: 
  Country: None (occurrence: None)
  Receive Date: 20100826
  Receipt Date: 20100816
  Transmission Date: 20110219
  Serious: Yes (Other)
  Sender: FDA-Public Use
  Company Number: PHHY2009AU40044

PATIENT
  Sex: Female

DRUGS (7)
  1. DIOVAN HCT [Suspect]
     Dosage: TABLET (160/12.5 MG)
     Route: 048
     Dates: start: 20090625, end: 20090701
  2. CRESTOR [Concomitant]
     Dosage: 10 MG, UNK
     Route: 048
  3. DIGOXIN [Concomitant]
     Dosage: 62.5 MG, UNK
  4. SOTALOL HCL [Concomitant]
     Dosage: 80 MG, UNK
  5. WARFARIN SODIUM [Concomitant]
  6. ATACAND [Concomitant]
  7. PANADOL [Concomitant]

REACTIONS (7)
  - BLOOD PRESSURE DECREASED [None]
  - DIZZINESS [None]
  - DYSARTHRIA [None]
  - FEELING ABNORMAL [None]
  - INTERNATIONAL NORMALISED RATIO INCREASED [None]
  - MALAISE [None]
  - TRANSIENT ISCHAEMIC ATTACK [None]
